FAERS Safety Report 12202719 (Version 7)
Quarter: 2019Q1

REPORT INFORMATION
  Report Type: Spontaneous
  Country: NO (occurrence: NO)
  Receive Date: 20160322
  Receipt Date: 20190117
  Transmission Date: 20190417
  Serious: Yes (Other)
  Sender: FDA-Public Use
  Company Number: NO-ASTRAZENECA-2016SE29482

PATIENT
  Age: 11943 Day
  Sex: Male
  Weight: 130 kg

DRUGS (24)
  1. SEROQUEL [Suspect]
     Active Substance: QUETIAPINE FUMARATE
     Indication: PSYCHOTIC DISORDER
     Route: 048
     Dates: start: 20071121, end: 20150112
  2. ZYPREXA [Suspect]
     Active Substance: OLANZAPINE
     Indication: PSYCHOTIC DISORDER
     Dosage: 7.5MG UNKNOWN
     Route: 065
  3. EFEXOR [Concomitant]
     Active Substance: VENLAFAXINE HYDROCHLORIDE
     Indication: PRODUCT USED FOR UNKNOWN INDICATION
     Route: 048
  4. ZYPREXA [Suspect]
     Active Substance: OLANZAPINE
     Indication: PARANOIA
     Dosage: 2.5MG UNKNOWN
     Route: 065
     Dates: start: 20071121, end: 20150112
  5. STILNOCT [Concomitant]
     Active Substance: ZOLPIDEM TARTRATE
     Indication: PRODUCT USED FOR UNKNOWN INDICATION
     Route: 065
  6. LAMICTAL [Concomitant]
     Active Substance: LAMOTRIGINE
     Indication: PRODUCT USED FOR UNKNOWN INDICATION
     Route: 048
  7. SEROQUEL [Suspect]
     Active Substance: QUETIAPINE FUMARATE
     Indication: PARANOIA
     Route: 048
     Dates: start: 20071121, end: 20150112
  8. SEROQUEL [Suspect]
     Active Substance: QUETIAPINE FUMARATE
     Indication: DEPRESSION
     Dosage: 200 MG, FOUR TIMES A DAY, ACTAVIS
     Route: 065
     Dates: start: 20071121, end: 20150112
  9. ABILIFY [Suspect]
     Active Substance: ARIPIPRAZOLE
     Indication: DEPRESSION
     Dosage: NON-AZ PRODUCT
     Route: 065
     Dates: start: 20071121, end: 20150112
  10. SEROQUEL [Suspect]
     Active Substance: QUETIAPINE FUMARATE
     Indication: SCHIZOAFFECTIVE DISORDER DEPRESSIVE TYPE
     Route: 048
     Dates: start: 20071121, end: 20150112
  11. SEROQUEL [Suspect]
     Active Substance: QUETIAPINE FUMARATE
     Indication: SCHIZOAFFECTIVE DISORDER DEPRESSIVE TYPE
     Dosage: 200 MG, FOUR TIMES A DAY, ACTAVIS
     Route: 065
     Dates: start: 20071121, end: 20150112
  12. ZYPREXA [Suspect]
     Active Substance: OLANZAPINE
     Indication: PSYCHOTIC DISORDER
     Dosage: 2.5MG UNKNOWN
     Route: 065
     Dates: start: 20071121, end: 20150112
  13. ZYPREXA [Suspect]
     Active Substance: OLANZAPINE
     Indication: DEPRESSION
     Dosage: 2.5MG UNKNOWN
     Route: 065
     Dates: start: 20071121, end: 20150112
  14. ZYPREXA [Suspect]
     Active Substance: OLANZAPINE
     Indication: SCHIZOAFFECTIVE DISORDER DEPRESSIVE TYPE
     Dosage: 7.5MG UNKNOWN
     Route: 065
  15. SEROQUEL [Suspect]
     Active Substance: QUETIAPINE FUMARATE
     Indication: PARANOIA
     Dosage: 200 MG, FOUR TIMES A DAY, ACTAVIS
     Route: 065
     Dates: start: 20071121, end: 20150112
  16. ABILIFY [Suspect]
     Active Substance: ARIPIPRAZOLE
     Indication: SCHIZOAFFECTIVE DISORDER DEPRESSIVE TYPE
     Dosage: NON-AZ PRODUCT
     Route: 065
     Dates: start: 20071121, end: 20150112
  17. ZYPREXA [Suspect]
     Active Substance: OLANZAPINE
     Indication: SCHIZOAFFECTIVE DISORDER DEPRESSIVE TYPE
     Dosage: 2.5MG UNKNOWN
     Route: 065
     Dates: start: 20071121, end: 20150112
  18. ZYPREXA [Suspect]
     Active Substance: OLANZAPINE
     Indication: PARANOIA
     Dosage: 7.5MG UNKNOWN
     Route: 065
  19. ZYPREXA [Suspect]
     Active Substance: OLANZAPINE
     Indication: DEPRESSION
     Dosage: 7.5MG UNKNOWN
     Route: 065
  20. CIPRALEX [Concomitant]
     Active Substance: ESCITALOPRAM OXALATE
     Indication: PRODUCT USED FOR UNKNOWN INDICATION
     Route: 048
  21. SEROQUEL [Suspect]
     Active Substance: QUETIAPINE FUMARATE
     Indication: DEPRESSION
     Route: 048
     Dates: start: 20071121, end: 20150112
  22. ABILIFY [Suspect]
     Active Substance: ARIPIPRAZOLE
     Indication: PSYCHOTIC DISORDER
     Dosage: NON-AZ PRODUCT
     Route: 065
     Dates: start: 20071121, end: 20150112
  23. ABILIFY [Suspect]
     Active Substance: ARIPIPRAZOLE
     Indication: PARANOIA
     Dosage: NON-AZ PRODUCT
     Route: 065
     Dates: start: 20071121, end: 20150112
  24. SEROQUEL [Suspect]
     Active Substance: QUETIAPINE FUMARATE
     Indication: PSYCHOTIC DISORDER
     Dosage: 200 MG, FOUR TIMES A DAY, ACTAVIS
     Route: 065
     Dates: start: 20071121, end: 20150112

REACTIONS (9)
  - Depression [Unknown]
  - Anxiety [Unknown]
  - Sedation [Unknown]
  - Weight increased [Not Recovered/Not Resolved]
  - Increased appetite [Unknown]
  - Food craving [Unknown]
  - Hyperphagia [Unknown]
  - Quality of life decreased [Not Recovered/Not Resolved]
  - Restlessness [Unknown]

NARRATIVE: CASE EVENT DATE: 20080201
